FAERS Safety Report 25878695 (Version 1)
Quarter: 2025Q4

REPORT INFORMATION
  Report Type: Spontaneous
  Country: US (occurrence: None)
  Receive Date: 20251003
  Receipt Date: 20251003
  Transmission Date: 20260119
  Serious: Yes (Disabling)
  Sender: FDA-CTU
  Company Number: None

PATIENT
  Age: 26 Year
  Sex: Male
  Weight: 135 kg

DRUGS (6)
  1. LURASIDONE HCL [Suspect]
     Active Substance: LURASIDONE HYDROCHLORIDE
     Indication: Bipolar I disorder
     Dates: start: 20220201, end: 20250301
  2. Lamotrigine 200mg (1x per day) [Concomitant]
  3. Acetazolamide 500mg (2x per day) [Concomitant]
  4. Testim testosterone gel 5mg (1x day) CPAP [Concomitant]
  5. Acetaminophen (for occassional muscle aches or if I get an upper respi [Concomitant]
  6. DEVICE [Concomitant]
     Active Substance: DEVICE

REACTIONS (5)
  - Withdrawal syndrome [None]
  - Poor quality sleep [None]
  - Product communication issue [None]
  - Product label issue [None]
  - Product communication issue [None]

NARRATIVE: CASE EVENT DATE: 20251002
